FAERS Safety Report 8524051-0 (Version None)
Quarter: 2012Q2

REPORT INFORMATION
  Report Type: 
  Country: None (occurrence: None)
  Receive Date: 20120406
  Receipt Date: 20111212
  Transmission Date: 20120825
  Serious: Yes (Hospitalization)
  Sender: FDA-Public Use
  Company Number: US-CYPR-2011-000068

PATIENT
  Sex: Female
  Weight: 53.978 kg

DRUGS (13)
  1. CLOPIDOGREL [Suspect]
     Indication: ANTIPLATELET THERAPY
     Dosage: (75 MG QD ORAL)
     Route: 048
     Dates: start: 20110209
  2. CLONIDINE [Concomitant]
  3. CYPHER STENT [Concomitant]
  4. ASPIRIN [Suspect]
     Indication: CORONARY ARTERY DISEASE
     Dosage: (81 MG QD ORAL)
     Route: 048
     Dates: start: 20100119
  5. CARDIZEM [Concomitant]
  6. TOPROL-XL [Concomitant]
  7. PREMARIN [Concomitant]
  8. NEURONTIN [Concomitant]
  9. LASIX [Concomitant]
  10. TRICOR [Concomitant]
  11. DIAZIDE [Concomitant]
  12. INSULIN [Concomitant]
  13. COZAAR [Concomitant]

REACTIONS (1)
  - ANGINA PECTORIS [None]
